FAERS Safety Report 4888042-3 (Version None)
Quarter: 2006Q1

REPORT INFORMATION
  Report Type: 
  Country: None (occurrence: None)
  Receive Date: 20060123
  Receipt Date: 20051006
  Transmission Date: 20060701
  Serious: Yes (Hospitalization, Disabling)
  Sender: FDA-Public Use
  Company Number: US-MERCK-0510USA04877

PATIENT
  Age: 56 Year
  Sex: Male
  Weight: 97 kg

DRUGS (6)
  1. VIOXX [Suspect]
     Indication: PAIN
     Route: 048
     Dates: start: 19990101, end: 20040201
  2. DIOVAN [Concomitant]
     Route: 065
  3. SULAR [Concomitant]
     Route: 065
  4. ASPIRIN [Concomitant]
     Route: 048
  5. ZOCOR [Concomitant]
     Route: 048
  6. LOPID [Concomitant]
     Route: 065

REACTIONS (11)
  - ANGINA PECTORIS [None]
  - ANXIETY [None]
  - CARTILAGE INJURY [None]
  - CORONARY ARTERY DISEASE [None]
  - CORONARY ARTERY STENOSIS [None]
  - EAR PAIN [None]
  - HYPERTENSION [None]
  - MYOCARDIAL INFARCTION [None]
  - NEPHROLITHIASIS [None]
  - OSTEOARTHRITIS [None]
  - PAIN [None]
